FAERS Safety Report 25314171 (Version 2)
Quarter: 2025Q2

REPORT INFORMATION
  Report Type: Spontaneous
  Country: HU (occurrence: HU)
  Receive Date: 20250514
  Receipt Date: 20250523
  Transmission Date: 20250717
  Serious: Yes (Other)
  Sender: TEVA
  Company Number: HU-TEVA-VS-3330007

PATIENT
  Age: 38 Year
  Sex: Female

DRUGS (8)
  1. PACLITAXEL [Suspect]
     Active Substance: PACLITAXEL
     Indication: Malignant hydatidiform mole
     Route: 065
     Dates: start: 202209, end: 202212
  2. PEMBROLIZUMAB [Suspect]
     Active Substance: PEMBROLIZUMAB
     Indication: Malignant hydatidiform mole
     Dosage: EVERY TWENTY-ONE DAYS
     Route: 065
     Dates: start: 202209, end: 202305
  3. METHOTREXATE [Suspect]
     Active Substance: METHOTREXATE
     Indication: Lung neoplasm malignant
     Route: 065
     Dates: start: 2023, end: 202310
  4. DACTINOMYCIN [Suspect]
     Active Substance: DACTINOMYCIN
     Indication: Lung neoplasm malignant
     Route: 065
     Dates: start: 2023, end: 202310
  5. ETOPOSIDE [Suspect]
     Active Substance: ETOPOSIDE
     Indication: Lung neoplasm malignant
     Route: 065
     Dates: start: 2023, end: 202310
  6. CYCLOPHOSPHAMIDE [Suspect]
     Active Substance: CYCLOPHOSPHAMIDE
     Indication: Lung neoplasm malignant
     Route: 065
     Dates: start: 2023, end: 202310
  7. CISPLATIN [Suspect]
     Active Substance: CISPLATIN
     Indication: Malignant hydatidiform mole
     Route: 065
     Dates: start: 2023, end: 202310
  8. VINCRISTINE [Suspect]
     Active Substance: VINCRISTINE
     Indication: Malignant hydatidiform mole
     Route: 065
     Dates: start: 2023, end: 202310

REACTIONS (2)
  - Bone marrow disorder [Unknown]
  - Drug ineffective [Unknown]

NARRATIVE: CASE EVENT DATE: 20230101
